FAERS Safety Report 15229147 (Version 1)
Quarter: 2018Q3

REPORT INFORMATION
  Report Type: Report from Study
  Country: US (occurrence: US)
  Receive Date: 20180801
  Receipt Date: 20180801
  Transmission Date: 20181010
  Serious: Yes (Other)
  Sender: FDA-Public Use
  Company Number: US-JAZZ-2018-US-011571

PATIENT
  Sex: Female

DRUGS (46)
  1. XYREM [Suspect]
     Active Substance: SODIUM OXYBATE
     Indication: CATAPLEXY
     Dosage: DOSE ADJUSTMENT
     Route: 048
     Dates: start: 200706, end: 200904
  2. BUPROPION HCL [Concomitant]
     Active Substance: BUPROPION HYDROCHLORIDE
  3. SPIRONOLACTONE. [Concomitant]
     Active Substance: SPIRONOLACTONE
  4. TRAZODONE [Concomitant]
     Active Substance: TRAZODONE HYDROCHLORIDE
  5. INSULIN [Concomitant]
     Active Substance: INSULIN NOS
  6. MYRBETRIQ [Concomitant]
     Active Substance: MIRABEGRON
  7. XYREM [Suspect]
     Active Substance: SODIUM OXYBATE
     Indication: NARCOLEPSY
     Dosage: 2.5 G, BID
     Route: 048
     Dates: start: 200704, end: 200706
  8. MIDODRINE HCL [Concomitant]
     Active Substance: MIDODRINE HYDROCHLORIDE
  9. CLINDAMYCIN HCL [Concomitant]
     Active Substance: CLINDAMYCIN HYDROCHLORIDE
  10. LEVOTHYROXINE. [Concomitant]
     Active Substance: LEVOTHYROXINE
  11. NEURONTIN [Concomitant]
     Active Substance: GABAPENTIN
  12. PROAIR HFA [Concomitant]
     Active Substance: ALBUTEROL SULFATE
  13. SYMBICORT [Concomitant]
     Active Substance: BUDESONIDE\FORMOTEROL FUMARATE DIHYDRATE
  14. DICLOFENAC [Concomitant]
     Active Substance: DICLOFENAC
  15. AMOXICILLIN SODIUM W/CLAVULANIC ACID [Concomitant]
     Active Substance: AMOXICILLIN\CLAVULANATE POTASSIUM
  16. ISOSORBIDE. [Concomitant]
     Active Substance: ISOSORBIDE
  17. METOLAZONE. [Concomitant]
     Active Substance: METOLAZONE
  18. XYREM [Suspect]
     Active Substance: SODIUM OXYBATE
     Dosage: 4.5 G, BID
     Route: 048
     Dates: start: 200904
  19. LEVETIRACETAM. [Concomitant]
     Active Substance: LEVETIRACETAM
  20. SILDENAFIL. [Concomitant]
     Active Substance: SILDENAFIL
  21. TRIPHROCAPS [Concomitant]
     Active Substance: ASCORBIC ACID\BIOTIN\CALCIUM PANTOTHENATE\CYANOCOBALAMIN\FOLIC ACID\NIACINAMIDE\PYRIDOXINE HYDROCHLORIDE\RIBOFLAVIN\THIAMINE HYDROCHLORIDE
  22. OMEPRAZOLE. [Concomitant]
     Active Substance: OMEPRAZOLE
  23. COENZYME Q10 [Concomitant]
     Active Substance: UBIDECARENONE
  24. PROPAFENONE. [Concomitant]
     Active Substance: PROPAFENONE
  25. ACETAMINOPHEN. [Concomitant]
     Active Substance: ACETAMINOPHEN
  26. HUMALOG [Concomitant]
     Active Substance: INSULIN LISPRO
  27. LEVEMIR [Concomitant]
     Active Substance: INSULIN DETEMIR
  28. OXYCODONE HYDROCHLORIDE. [Concomitant]
     Active Substance: OXYCODONE HYDROCHLORIDE
  29. FISH OIL [Concomitant]
     Active Substance: FISH OIL
  30. LISINOPRIL. [Concomitant]
     Active Substance: LISINOPRIL
  31. METFORMIN HCL [Concomitant]
     Active Substance: METFORMIN HYDROCHLORIDE
  32. ELIQUIS [Concomitant]
     Active Substance: APIXABAN
  33. ALBUTEROL SULFATE. [Concomitant]
     Active Substance: ALBUTEROL SULFATE
  34. COLCHICINE. [Concomitant]
     Active Substance: COLCHICINE
  35. XARELTO [Concomitant]
     Active Substance: RIVAROXABAN
  36. CYMBALTA [Concomitant]
     Active Substance: DULOXETINE HYDROCHLORIDE
  37. ESTRACE [Concomitant]
     Active Substance: ESTRADIOL
  38. WARFARIN SODIUM. [Concomitant]
     Active Substance: WARFARIN SODIUM
  39. SERTRALINE HCL [Concomitant]
     Active Substance: SERTRALINE HYDROCHLORIDE
  40. TORSEMIDE. [Concomitant]
     Active Substance: TORSEMIDE
  41. VITAMIN D2 [Concomitant]
     Active Substance: ERGOCALCIFEROL
  42. PENLAC [Concomitant]
     Active Substance: CICLOPIROX
  43. ADEMPAS [Concomitant]
     Active Substance: RIOCIGUAT
  44. DESONIDE. [Concomitant]
     Active Substance: DESONIDE
  45. LIPITOR [Concomitant]
     Active Substance: ATORVASTATIN CALCIUM
  46. DILTIAZEM. [Concomitant]
     Active Substance: DILTIAZEM

REACTIONS (1)
  - Fistula [Unknown]
